FAERS Safety Report 4876067-3 (Version None)
Quarter: 2006Q1

REPORT INFORMATION
  Report Type: 
  Country: None (occurrence: None)
  Receive Date: 20060110
  Receipt Date: 20060110
  Transmission Date: 20060701
  Serious: Yes (Other)
  Sender: FDA-Public Use
  Company Number: None

PATIENT
  Sex: Female
  Weight: 97.7 kg

DRUGS (2)
  1. CYCLOPHOSPHAMIDE [Suspect]
     Indication: BREAST CANCER
     Dosage: 100 MG/DAY X 13 WEEKS PO
     Route: 048
     Dates: start: 20050912, end: 20051212
  2. DOXORUBICIN HCL [Suspect]
     Dates: start: 20050912, end: 20051205

REACTIONS (13)
  - ASTHENIA [None]
  - DEHYDRATION [None]
  - DEPRESSED LEVEL OF CONSCIOUSNESS [None]
  - DIZZINESS [None]
  - HERPES ZOSTER [None]
  - MALIGNANT NEOPLASM PROGRESSION [None]
  - MENTAL STATUS CHANGES [None]
  - MUSCULAR WEAKNESS [None]
  - NAUSEA [None]
  - NEUTROPENIA [None]
  - OXYGEN SATURATION DECREASED [None]
  - THROMBOCYTOPENIA [None]
  - VOMITING [None]
